FAERS Safety Report 21438469 (Version 1)
Quarter: 2022Q4

REPORT INFORMATION
  Report Type: Spontaneous
  Country: TT (occurrence: TT)
  Receive Date: 20221011
  Receipt Date: 20221011
  Transmission Date: 20230112
  Serious: Yes (Other)
  Sender: FDA-Public Use
  Company Number: TT-SUN PHARMACEUTICAL INDUSTRIES LTD-2022RR-358077

PATIENT
  Age: 32 Year
  Sex: Male

DRUGS (7)
  1. AMLODIPINE [Suspect]
     Active Substance: AMLODIPINE BESYLATE
     Indication: Acute coronary syndrome
     Dosage: UNK
     Route: 065
  2. RAMIPRIL [Suspect]
     Active Substance: RAMIPRIL
     Indication: Acute coronary syndrome
     Dosage: UNK
     Route: 065
  3. ASPIRIN [Suspect]
     Active Substance: ASPIRIN
     Indication: Acute coronary syndrome
     Dosage: UNK
     Route: 065
  4. CARVEDILOL [Suspect]
     Active Substance: CARVEDILOL
     Indication: Acute coronary syndrome
     Dosage: UNK
     Route: 065
  5. ATORVASTATIN [Suspect]
     Active Substance: ATORVASTATIN
     Indication: Acute coronary syndrome
     Dosage: UNK
     Route: 065
  6. TICAGRELOR [Suspect]
     Active Substance: TICAGRELOR
     Indication: Acute coronary syndrome
     Dosage: UNK
     Route: 065
  7. HEPARIN [Suspect]
     Active Substance: HEPARIN SODIUM
     Indication: Acute coronary syndrome
     Dosage: UNK
     Route: 065

REACTIONS (1)
  - Condition aggravated [Unknown]
